FAERS Safety Report 9837946 (Version 1)
Quarter: 2013Q4

REPORT INFORMATION
  Report Type: Spontaneous
  Country: US (occurrence: None)
  Receive Date: 20131205
  Receipt Date: 20131205
  Transmission Date: 20140711
  Serious: Yes (Hospitalization)
  Sender: FDA-Public Use
  Company Number: 163-POMAL-13094356

PATIENT
  Age: 64 Year
  Sex: Female

DRUGS (2)
  1. POMALYST (POMALIDOMIDE) (4 MILLIGRAM CAPSULES) [Suspect]
     Indication: PLASMA CELL MYELOMA
     Dosage: 4MG, 21 IN 21 D, PO
     Route: 048
     Dates: start: 20130612
  2. METHYLPREDNISOLONE (METHYLPREDNISOLONE) (TABLETS) [Concomitant]

REACTIONS (2)
  - Infection [None]
  - Pyrexia [None]
